FAERS Safety Report 17614387 (Version 1)
Quarter: 2020Q2

REPORT INFORMATION
  Report Type: Spontaneous
  Country: US (occurrence: US)
  Receive Date: 20200402
  Receipt Date: 20200402
  Transmission Date: 20200713
  Serious: Yes (Hospitalization)
  Sender: FDA-Public Use
  Company Number: US-ASTRAZENECA-2020SE43835

PATIENT
  Age: 1 Year
  Sex: Female
  Weight: 6.3 kg

DRUGS (3)
  1. SYNAGIS [Suspect]
     Active Substance: PALIVIZUMAB
     Indication: ANTIVIRAL PROPHYLAXIS
     Route: 030
  2. LACTULOSE. [Concomitant]
     Active Substance: LACTULOSE
  3. IRON [Concomitant]
     Active Substance: IRON

REACTIONS (1)
  - Crying [Unknown]
